FAERS Safety Report 11760878 (Version 1)
Quarter: 2015Q4

REPORT INFORMATION
  Report Type: Report from Study
  Country: JP (occurrence: JP)
  Receive Date: 20151120
  Receipt Date: 20151120
  Transmission Date: 20160304
  Serious: Yes (Hospitalization)
  Sender: FDA-Public Use
  Company Number: JP-FERRINGPH-2015FE03799

PATIENT
  Age: 82 Year
  Sex: Male
  Weight: 66 kg

DRUGS (3)
  1. FE 200486 [Suspect]
     Active Substance: DEGARELIX ACETATE
     Indication: PROSTATE CANCER
     Dosage: 240 MG, ONCE/SINGLE
     Route: 058
     Dates: start: 20140404, end: 20140404
  2. FE 200486 [Suspect]
     Active Substance: DEGARELIX ACETATE
     Dosage: 480 MG, EVERY 3RD MONTH
     Route: 058
     Dates: start: 20140502
  3. AMLODIPINE [Concomitant]
     Active Substance: AMLODIPINE BESYLATE
     Indication: PRODUCT USED FOR UNKNOWN INDICATION
     Dosage: UNK
     Route: 065
     Dates: start: 20150307

REACTIONS (4)
  - Humerus fracture [Recovering/Resolving]
  - Fall [None]
  - Joint dislocation [Recovering/Resolving]
  - Bone density decreased [None]

NARRATIVE: CASE EVENT DATE: 20151018
